FAERS Safety Report 24995011 (Version 2)
Quarter: 2025Q1

REPORT INFORMATION
  Report Type: Spontaneous
  Country: US (occurrence: US)
  Receive Date: 20250221
  Receipt Date: 20250318
  Transmission Date: 20250409
  Serious: Yes (Disabling, Other)
  Sender: REGENERON
  Company Number: US-REGENERON PHARMACEUTICALS, INC.-2025-025143

PATIENT
  Sex: Female

DRUGS (3)
  1. EYLEA HD [Suspect]
     Active Substance: AFLIBERCEPT
     Indication: Neovascular age-related macular degeneration
     Dosage: 8 MG (0.07 ML), EVERY 28 DAYS (4 WEEKS), LEFT EYE, FORMULATION: HD VIAL, STRENGTH: 114.3 MG/ML
     Dates: start: 20240104, end: 20240104
  2. EYLEA HD [Suspect]
     Active Substance: AFLIBERCEPT
     Dosage: 8 MG (0.07 ML), EVERY 28 DAYS (4 WEEKS), LEFT EYE, FORMULATION: HD VIAL, STRENGTH: 114.3 MG/ML
     Dates: start: 20240201, end: 20240201
  3. TIMOLOL [Concomitant]
     Active Substance: TIMOLOL
     Indication: Product used for unknown indication
     Dosage: 1 GTTS, OD BID

REACTIONS (2)
  - Blindness unilateral [Recovered/Resolved]
  - Endophthalmitis [Recovered/Resolved with Sequelae]

NARRATIVE: CASE EVENT DATE: 20240204
